FAERS Safety Report 7380266-9 (Version None)
Quarter: 2011Q1

REPORT INFORMATION
  Report Type: 
  Country: None (occurrence: None)
  Receive Date: 20110324
  Receipt Date: 20110324
  Transmission Date: 20110831
  Serious: Yes (Hospitalization)
  Sender: FDA-Public Use
  Company Number: None

PATIENT
  Sex: Male
  Weight: 128 kg

DRUGS (1)
  1. TEMOZOLOMIDE [Suspect]
     Dosage: 190 MG
     Dates: end: 20110314

REACTIONS (4)
  - PULMONARY EMBOLISM [None]
  - LUNG INFECTION [None]
  - LUNG CONSOLIDATION [None]
  - ATELECTASIS [None]
